FAERS Safety Report 5146233-0 (Version None)
Quarter: 2006Q4

REPORT INFORMATION
  Report Type: 
  Country: None (occurrence: None)
  Receive Date: 20061108
  Receipt Date: 20060302
  Transmission Date: 20070319
  Serious: Yes (Other)
  Sender: FDA-Public Use
  Company Number: US-ELI_LILLY_AND_COMPANY-US200603002234

PATIENT
  Age: 40 Year
  Sex: Female
  Weight: 90.702 kg

DRUGS (1)
  1. ZYPREXA [Suspect]
     Indication: DEPRESSION
     Dosage: 7.5 MG, UNK
     Dates: start: 19971101, end: 19981201

REACTIONS (8)
  - ANGIOPATHY [None]
  - CEREBROVASCULAR DISORDER [None]
  - DIABETES MELLITUS NON-INSULIN-DEPENDENT [None]
  - DIABETIC COMA [None]
  - DIABETIC KETOACIDOSIS [None]
  - HEPATITIS VIRAL [None]
  - HYPERTENSION [None]
  - PANCREATITIS [None]
